FAERS Safety Report 8049994-6 (Version None)
Quarter: 2012Q1

REPORT INFORMATION
  Report Type: 
  Country: None (occurrence: None)
  Receive Date: 20120117
  Receipt Date: 20120111
  Transmission Date: 20120608
  Serious: Yes (Hospitalization, Other)
  Sender: FDA-Public Use
  Company Number: US-PFIZER INC-2011257625

PATIENT
  Sex: Female

DRUGS (6)
  1. OXYCODONE [Concomitant]
     Indication: PAIN
     Dosage: UNK
     Dates: start: 20060101, end: 20100101
  2. LEXAPRO [Concomitant]
     Indication: DEPRESSION
     Dosage: UNK
     Dates: start: 20000101
  3. DARVOCET [Concomitant]
     Indication: PAIN
     Dosage: UNK
     Dates: start: 20060101, end: 20100101
  4. CHANTIX [Suspect]
     Indication: SMOKING CESSATION THERAPY
     Dosage: 0.5 MG/1 MG
     Dates: start: 20070901, end: 20071001
  5. TOPAMAX [Concomitant]
     Indication: DYSKINESIA
     Dosage: UNK
     Dates: start: 20060101, end: 20080101
  6. WELLBUTRIN [Concomitant]
     Indication: DEPRESSION
     Dosage: UNK
     Dates: start: 20000101

REACTIONS (10)
  - PARANOIA [None]
  - TACHYPHRENIA [None]
  - INSOMNIA [None]
  - NIGHTMARE [None]
  - AMNESIA [None]
  - SUICIDE ATTEMPT [None]
  - DEPRESSION [None]
  - IRRITABILITY [None]
  - PSYCHOTIC DISORDER [None]
  - ANXIETY [None]
